FAERS Safety Report 7581346-5 (Version None)
Quarter: 2011Q2

REPORT INFORMATION
  Report Type: 
  Country: None (occurrence: None)
  Receive Date: 20110629
  Receipt Date: 20110620
  Transmission Date: 20111010
  Serious: Yes (Hospitalization, Other)
  Sender: FDA-Public Use
  Company Number: US-ASTRAZENECA-2010SE26252

PATIENT
  Age: 58 Year
  Sex: Male
  Weight: 113.4 kg

DRUGS (12)
  1. DILAUDID [Concomitant]
  2. DILAUDID [Concomitant]
     Indication: ANXIETY
  3. DILAUDID [Concomitant]
  4. DILAUDID [Concomitant]
     Indication: PAIN
  5. OXYCONTIN [Concomitant]
  6. VALIUM [Concomitant]
     Indication: ANXIETY
  7. SULFONIMIDE [Concomitant]
  8. ATOCRIN [Concomitant]
     Indication: DIURETIC THERAPY
     Dosage: DAILY
  9. METORIN [Concomitant]
     Indication: BLOOD PRESSURE ABNORMAL
  10. NEXIUM [Suspect]
     Indication: GASTROOESOPHAGEAL REFLUX DISEASE
     Route: 048
     Dates: start: 20010101
  11. OXYCONTIN [Concomitant]
     Indication: PAIN
  12. FENTANYL [Concomitant]
     Indication: PAIN
     Dosage: 5 MG Q72H

REACTIONS (10)
  - STAPHYLOCOCCAL INFECTION [None]
  - HEAD INJURY [None]
  - FALL [None]
  - AMNESIA [None]
  - LOWER LIMB FRACTURE [None]
  - HIP ARTHROPLASTY [None]
  - OSTEONECROSIS [None]
  - ABASIA [None]
  - ROAD TRAFFIC ACCIDENT [None]
  - NEUROPATHY PERIPHERAL [None]
